FAERS Safety Report 9633234 (Version 1)
Quarter: 2013Q4

REPORT INFORMATION
  Report Type: Spontaneous
  Country: GB (occurrence: None)
  Receive Date: 20131017
  Receipt Date: 20131017
  Transmission Date: 20140711
  Serious: Yes (Hospitalization)
  Sender: FDA-Public Use
  Company Number: 1943763

PATIENT
  Age: 12 Year
  Sex: Female

DRUGS (5)
  1. METHOTREXATE [Suspect]
     Indication: PRODUCT USED FOR UNKNOWN INDICATION
  2. HUMAN PAPILLOMA VACCINE CERVARIX [Suspect]
     Indication: PROPHYLAXIS
  3. PREDNISOLONE [Suspect]
     Indication: PRODUCT USED FOR UNKNOWN INDICATION
  4. ANAKINRA [Suspect]
     Indication: PRODUCT USED FOR UNKNOWN INDICATION
  5. TOCILIZUMAB [Suspect]
     Indication: PRODUCT USED FOR UNKNOWN INDICATION

REACTIONS (20)
  - Juvenile idiopathic arthritis [None]
  - Tonsillitis [None]
  - Joint swelling [None]
  - Weight decreased [None]
  - Immobile [None]
  - Hyperglycaemia [None]
  - Local swelling [None]
  - Pain [None]
  - Malaise [None]
  - Rash [None]
  - Cough [None]
  - Fatigue [None]
  - Arthralgia [None]
  - Somnolence [None]
  - Pericardial effusion [None]
  - Dyspnoea [None]
  - Pruritus [None]
  - Fatigue [None]
  - Infection [None]
  - Body temperature increased [None]
